FAERS Safety Report 19939880 (Version 1)
Quarter: 2021Q4

REPORT INFORMATION
  Report Type: Spontaneous
  Country: SK (occurrence: SK)
  Receive Date: 20211011
  Receipt Date: 20211011
  Transmission Date: 20220303
  Serious: Yes (Other)
  Sender: FDA-Public Use
  Company Number: SK-BAYER-2021A224044

PATIENT

DRUGS (1)
  1. XOFIGO [Suspect]
     Active Substance: RADIUM RA-223 DICHLORIDE
     Dosage: UNK

REACTIONS (3)
  - Metastases to meninges [None]
  - Febrile neutropenia [None]
  - Platelet count decreased [None]

NARRATIVE: CASE EVENT DATE: 20190101
